FAERS Safety Report 12305291 (Version 2)
Quarter: 2016Q2

REPORT INFORMATION
  Report Type: Spontaneous
  Country: BR (occurrence: BR)
  Receive Date: 20160426
  Receipt Date: 20160504
  Transmission Date: 20160815
  Serious: Yes (Other)
  Sender: FDA-Public Use
  Company Number: CHPA2016BR003249

PATIENT
  Age: 58 Year
  Sex: Female
  Weight: 94 kg

DRUGS (5)
  1. CATAFLAMPRO [Suspect]
     Active Substance: DICLOFENAC DIETHYLAMINE
     Indication: HAND FRACTURE
  2. HYDROCHLOROTHIAZIDE. [Concomitant]
     Active Substance: HYDROCHLOROTHIAZIDE
     Indication: PRODUCT USED FOR UNKNOWN INDICATION
     Dosage: UNK
     Route: 065
  3. CATAFLAMPRO [Suspect]
     Active Substance: DICLOFENAC DIETHYLAMINE
     Indication: SPINAL PAIN
  4. CATAFLAMPRO [Suspect]
     Active Substance: DICLOFENAC DIETHYLAMINE
     Indication: BACK PAIN
     Dosage: UNK, TID
     Route: 061
     Dates: start: 2006
  5. XARELTO [Concomitant]
     Active Substance: RIVAROXABAN
     Indication: PRODUCT USED FOR UNKNOWN INDICATION
     Dosage: 20 MG, UNK
     Route: 065
     Dates: start: 201510

REACTIONS (4)
  - Spinal fracture [Recovered/Resolved]
  - Hand fracture [Recovered/Resolved]
  - Pulmonary embolism [Recovering/Resolving]
  - Product quality issue [Unknown]

NARRATIVE: CASE EVENT DATE: 2015
